FAERS Safety Report 7303281-X (Version None)
Quarter: 2011Q1

REPORT INFORMATION
  Report Type: 
  Country: None (occurrence: None)
  Receive Date: 20110221
  Receipt Date: 20110208
  Transmission Date: 20110831
  Serious: Yes (Other)
  Sender: FDA-Public Use
  Company Number: ES-RANBAXY-2011RR-41796

PATIENT
  Age: 48 Year
  Sex: Male

DRUGS (3)
  1. LOVAZA [Concomitant]
  2. SIMVASTATIN [Suspect]
  3. SIMVASTATIN [Suspect]
     Dosage: 40 MG, UNK

REACTIONS (6)
  - ASTHENIA [None]
  - RENAL FAILURE ACUTE [None]
  - RHABDOMYOLYSIS [None]
  - SOMNOLENCE [None]
  - DEPRESSION [None]
  - INITIAL INSOMNIA [None]
